FAERS Safety Report 4354535-0 (Version None)
Quarter: 2004Q2

REPORT INFORMATION
  Report Type: 
  Country: None (occurrence: None)
  Receive Date: 20040503
  Receipt Date: 20040419
  Transmission Date: 20050107
  Serious: Yes (Hospitalization, Other)
  Sender: FDA-Public Use
  Company Number: US-SHR-03-018802

PATIENT
  Age: 54 Year
  Sex: Male
  Weight: 56.7 kg

DRUGS (6)
  1. BETASERON [Suspect]
     Indication: MULTIPLE SCLEROSIS
     Dosage: 8 MIU, EVERY 2D, SUBCUTANEOUS; 4 MIU, EVERY 2D, SUBCUTANEOUS
     Route: 058
     Dates: start: 19990305, end: 20030601
  2. BETASERON [Suspect]
     Indication: MULTIPLE SCLEROSIS
     Dosage: 8 MIU, EVERY 2D, SUBCUTANEOUS; 4 MIU, EVERY 2D, SUBCUTANEOUS
     Route: 058
     Dates: start: 20030601
  3. BACLOFEN [Concomitant]
  4. ZOLOFT [Concomitant]
  5. PERCOCET [Concomitant]
  6. ADVIL [Concomitant]

REACTIONS (4)
  - BLADDER CANCER [None]
  - METASTASES TO LUNG [None]
  - MULTIPLE SCLEROSIS [None]
  - STAPHYLOCOCCAL INFECTION [None]
